FAERS Safety Report 5751663-X (Version None)
Quarter: 2008Q2

REPORT INFORMATION
  Report Type: 
  Country: None (occurrence: None)
  Receive Date: 20080528
  Receipt Date: 20080521
  Transmission Date: 20081010
  Serious: Yes (Life-Threatening, Disabling)
  Sender: FDA-Public Use
  Company Number: PHBS2005JP08966

PATIENT
  Sex: Male
  Weight: 61 kg

DRUGS (7)
  1. TEGRETOL [Suspect]
     Indication: MANIA
     Dosage: 200 MG, TID
     Route: 048
     Dates: start: 20050203, end: 20050208
  2. LITHIUM CARBONATE [Suspect]
     Indication: MANIA
     Dosage: 400 MG, TID
     Route: 048
     Dates: start: 20050203, end: 20050101
  3. LITHIUM CARBONATE [Suspect]
     Dosage: 600 MG/DAY
     Route: 048
     Dates: start: 20050101
  4. LODOPIN [Concomitant]
     Indication: MANIA
     Dosage: 90 MG/DAY
     Route: 048
     Dates: start: 20050203, end: 20050208
  5. AKINETON [Concomitant]
     Indication: PARKINSON'S DISEASE
     Dosage: 4.5 MG/DAY
     Route: 048
     Dates: start: 20050203, end: 20050208
  6. NITRAZEPAM [Concomitant]
     Indication: INSOMNIA
     Dosage: 10 MG/DAY
     Route: 048
     Dates: start: 20050203, end: 20050208
  7. PROMETHAZINE [Concomitant]
     Indication: BIPOLAR I DISORDER
     Dosage: 600 MG/DAY
     Route: 048
     Dates: start: 20050101

REACTIONS (21)
  - ALANINE AMINOTRANSFERASE INCREASED [None]
  - ASPARTATE AMINOTRANSFERASE INCREASED [None]
  - ATRIOVENTRICULAR BLOCK COMPLETE [None]
  - BLOOD ALKALINE PHOSPHATASE INCREASED [None]
  - BLOOD BILIRUBIN INCREASED [None]
  - BLOOD CREATININE INCREASED [None]
  - BLOOD GLUCOSE INCREASED [None]
  - BLOOD POTASSIUM INCREASED [None]
  - BLOOD SODIUM DECREASED [None]
  - BLOOD UREA INCREASED [None]
  - CARDIAC ARREST [None]
  - CARDIAC PACEMAKER INSERTION [None]
  - CIRCULATORY COLLAPSE [None]
  - CONDUCTION DISORDER [None]
  - FALL [None]
  - GAMMA-GLUTAMYLTRANSFERASE INCREASED [None]
  - HAEMOGLOBIN DECREASED [None]
  - LOSS OF CONSCIOUSNESS [None]
  - MALAISE [None]
  - PULSE ABSENT [None]
  - WHITE BLOOD CELL COUNT INCREASED [None]
